FAERS Safety Report 8844690 (Version 8)
Quarter: 2014Q1

REPORT INFORMATION
  Report Type: Report from Study
  Country: LB (occurrence: LB)
  Receive Date: 20121017
  Receipt Date: 20140321
  Transmission Date: 20141002
  Serious: Yes (Hospitalization, Other)
  Sender: FDA-Public Use
  Company Number: PHHY2012LB092237

PATIENT
  Age: 33 Year
  Sex: Male

DRUGS (9)
  1. TASIGNA [Suspect]
     Indication: CHRONIC MYELOID LEUKAEMIA
     Dosage: 400 MG, Q12H
     Route: 048
     Dates: start: 20120901
  2. TAVANIC [Suspect]
     Dosage: 1 DF, PER DAY
     Route: 048
     Dates: start: 20130707
  3. DALACIN [Suspect]
     Dosage: 1 DF, Q8H
     Route: 048
  4. INSULIN [Concomitant]
     Dosage: 14 U, EVENING
     Route: 065
     Dates: start: 2007
  5. GLUCOPHAGE [Concomitant]
     Dosage: 1 DF, Q12H
     Route: 048
     Dates: start: 2007
  6. CONCOR [Concomitant]
     Dosage: 1 DF, PER DAY
     Route: 048
     Dates: start: 2007
  7. PARIET [Concomitant]
     Dosage: 1 DF, Q12H
     Route: 048
     Dates: start: 201209
  8. MOTILIUM [Concomitant]
     Dosage: 1 DF, Q8H
     Route: 048
     Dates: start: 201209
  9. ZYLORIC [Concomitant]
     Dosage: 1 DF, PER DAY
     Route: 048
     Dates: start: 201209

REACTIONS (6)
  - Cerebrovascular accident [Recovering/Resolving]
  - Hypertension [Recovering/Resolving]
  - Localised infection [Not Recovered/Not Resolved]
  - Abdominal pain upper [Not Recovered/Not Resolved]
  - Abdominal pain [Not Recovered/Not Resolved]
  - Leukocytosis [Not Recovered/Not Resolved]
